FAERS Safety Report 23348256 (Version 2)
Quarter: 2024Q1

REPORT INFORMATION
  Report Type: Spontaneous
  Country: AT (occurrence: AT)
  Receive Date: 20231228
  Receipt Date: 20240101
  Transmission Date: 20240410
  Serious: Yes (Other)
  Sender: FDA-Public Use
  Company Number: None

PATIENT
  Age: 52 Year
  Sex: Female

DRUGS (6)
  1. BRODALUMAB [Suspect]
     Active Substance: BRODALUMAB
     Indication: Product used for unknown indication
     Dosage: 3X: INCLUDING SIGNIFICANT DETERIORATION
     Route: 065
     Dates: start: 201906, end: 201907
  2. ADALIMUMAB [Suspect]
     Active Substance: ADALIMUMAB\ISOPROPYL ALCOHOL
     Indication: Psoriasis
     Route: 058
     Dates: start: 201904, end: 201905
  3. ACITRETIN [Suspect]
     Active Substance: ACITRETIN
     Indication: Product used for unknown indication
     Dosage: DURATION OVER 3 WEEKS, LAST ADMIN DATE 2019
     Route: 065
     Dates: start: 201910
  4. SKYRIZI [Suspect]
     Active Substance: RISANKIZUMAB-RZAA
     Indication: Psoriasis
     Dosage: WEEK FOUR
     Route: 058
     Dates: start: 201911, end: 201911
  5. SKYRIZI [Suspect]
     Active Substance: RISANKIZUMAB-RZAA
     Dosage: WEEK ZERO
     Route: 058
     Dates: start: 20191029, end: 20191029
  6. SKYRIZI [Suspect]
     Active Substance: RISANKIZUMAB-RZAA
     Route: 058

REACTIONS (6)
  - Cervical dysplasia [Unknown]
  - Neuroendocrine tumour of the lung [Recovered/Resolved]
  - Pain [Unknown]
  - Palmoplantar pustulosis [Unknown]
  - Psoriasis [Unknown]
  - Headache [Unknown]
